FAERS Safety Report 11502208 (Version 1)
Quarter: 2015Q3

REPORT INFORMATION
  Report Type: Spontaneous
  Country: GB (occurrence: GB)
  Receive Date: 20150914
  Receipt Date: 20150914
  Transmission Date: 20151125
  Serious: Yes (Other)
  Sender: FDA-Public Use
  Company Number: GB-ELI_LILLY_AND_COMPANY-GB201509003509

PATIENT
  Age: 17 Year
  Sex: Male
  Weight: 114.3 kg

DRUGS (1)
  1. FLUOXETINE [Suspect]
     Active Substance: FLUOXETINE\FLUOXETINE HYDROCHLORIDE
     Indication: CHILDHOOD DEPRESSION
     Dosage: 20 MG, UNKNOWN
     Route: 048
     Dates: start: 20150612, end: 20150717

REACTIONS (1)
  - Urticaria [Recovered/Resolved]

NARRATIVE: CASE EVENT DATE: 20150713
